FAERS Safety Report 11493622 (Version 1)
Quarter: 2015Q3

REPORT INFORMATION
  Report Type: Spontaneous
  Country: DE (occurrence: DE)
  Receive Date: 20150911
  Receipt Date: 20150911
  Transmission Date: 20151125
  Serious: Yes (Hospitalization)
  Sender: FDA-Public Use
  Company Number: DE-ASTRAZENECA-2015SE86379

PATIENT
  Age: 73 Year
  Sex: Female

DRUGS (7)
  1. JANUVIA [Suspect]
     Active Substance: SITAGLIPTIN PHOSPHATE
     Route: 048
  2. OXAZEPAM. [Suspect]
     Active Substance: OXAZEPAM
     Route: 048
     Dates: start: 20150402
  3. MADOPAR [Suspect]
     Active Substance: BENSERAZIDE HYDROCHLORIDE\LEVODOPA
     Dosage: 100/25, TWO DF DAILY
     Route: 048
  4. EXELON [Suspect]
     Active Substance: RIVASTIGMINE TARTRATE
     Route: 048
  5. SEROQUEL [Suspect]
     Active Substance: QUETIAPINE FUMARATE
     Dosage: 50-100 MG
     Route: 048
  6. BISOPROLOL [Suspect]
     Active Substance: BISOPROLOL
     Route: 048
  7. ROPINIROLE. [Suspect]
     Active Substance: ROPINIROLE
     Route: 048

REACTIONS (4)
  - Fall [Unknown]
  - Skin abrasion [Unknown]
  - Femur fracture [Unknown]
  - Pelvic fracture [Unknown]

NARRATIVE: CASE EVENT DATE: 20150304
